FAERS Safety Report 6065898-2 (Version None)
Quarter: 2009Q1

REPORT INFORMATION
  Report Type: 
  Country: None (occurrence: None)
  Receive Date: 20090205
  Receipt Date: 20090126
  Transmission Date: 20090719
  Serious: Yes (Hospitalization)
  Sender: FDA-Public Use
  Company Number: FR-JNJFOC-20090106453

PATIENT
  Age: 44 Year
  Sex: Male

DRUGS (5)
  1. REMICADE [Suspect]
     Dosage: RECEIVED 2 INFUSIONS
     Route: 042
  2. REMICADE [Suspect]
     Indication: ANKYLOSING SPONDYLITIS
     Route: 042
  3. FELDENE [Concomitant]
     Indication: ANKYLOSING SPONDYLITIS
     Route: 048
  4. IXPRIM [Concomitant]
     Indication: ANKYLOSING SPONDYLITIS
     Route: 048
  5. ACETAMINOPHEN [Concomitant]
     Indication: ANKYLOSING SPONDYLITIS
     Dosage: 1 ^DF^ DAILY
     Route: 048

REACTIONS (2)
  - HAEMOPTYSIS [None]
  - PULMONARY ALVEOLAR HAEMORRHAGE [None]
